FAERS Safety Report 8607225-X (Version None)
Quarter: 2012Q3

REPORT INFORMATION
  Report Type: 
  Country: None (occurrence: None)
  Receive Date: 20120821
  Receipt Date: 20120813
  Transmission Date: 20120928
  Serious: No
  Sender: FDA-Public Use
  Company Number: US-BIOGENIDEC-2012BI031174

PATIENT
  Sex: Female

DRUGS (2)
  1. AVONEX [Suspect]
     Indication: MULTIPLE SCLEROSIS
     Route: 030
     Dates: start: 20120629
  2. AVONEX [Suspect]
     Route: 030
     Dates: start: 20120802, end: 20120810

REACTIONS (17)
  - VAGINAL HAEMORRHAGE [None]
  - IRRITABILITY [None]
  - INCREASED TENDENCY TO BRUISE [None]
  - INCREASED APPETITE [None]
  - ARTHROPOD STING [None]
  - WEIGHT INCREASED [None]
  - PRURITUS [None]
  - INJECTION SITE HAEMATOMA [None]
  - CELLULITIS [None]
  - ANGER [None]
  - OEDEMA PERIPHERAL [None]
  - INJECTION SITE SWELLING [None]
  - FEELING HOT [None]
  - VULVOVAGINAL PRURITUS [None]
  - PAIN IN EXTREMITY [None]
  - COORDINATION ABNORMAL [None]
  - AMENORRHOEA [None]
